FAERS Safety Report 4990056-X (Version None)
Quarter: 2006Q2

REPORT INFORMATION
  Report Type: 
  Country: None (occurrence: None)
  Receive Date: 20060503
  Receipt Date: 20060427
  Transmission Date: 20061013
  Serious: Yes (Death, Life-Threatening, Hospitalization)
  Sender: FDA-Public Use
  Company Number: CH-BOEHRINGER INGELHEIM PHARMACEUTICALS, INC.-2006-DE-02153SI

PATIENT
  Sex: Male

DRUGS (5)
  1. SPIRIVA [Suspect]
     Route: 055
     Dates: start: 20060217
  2. LYRICA [Suspect]
     Indication: POST HERPETIC NEURALGIA
     Route: 048
     Dates: start: 20060220, end: 20060304
  3. DIGOXIN [Suspect]
     Route: 048
     Dates: start: 20060217, end: 20060301
  4. SYMBICORT [Suspect]
     Route: 055
     Dates: start: 20060217
  5. APROVEL [Concomitant]
     Route: 048
     Dates: start: 20000101, end: 20060301

REACTIONS (12)
  - CARDIAC FAILURE [None]
  - CHRONIC OBSTRUCTIVE PULMONARY DISEASE [None]
  - CONDITION AGGRAVATED [None]
  - ENDOCARDITIS [None]
  - ENTEROBACTER INFECTION [None]
  - LEUKOCYTOCLASTIC VASCULITIS [None]
  - LUNG INFECTION [None]
  - MYOCARDIAL INFARCTION [None]
  - PNEUMOTHORAX [None]
  - RENAL IMPAIRMENT [None]
  - SEPSIS [None]
  - STREPTOCOCCAL INFECTION [None]
